FAERS Safety Report 21223206 (Version 1)
Quarter: 2022Q3

REPORT INFORMATION
  Report Type: Spontaneous
  Country: US (occurrence: None)
  Receive Date: 20220816
  Receipt Date: 20220816
  Transmission Date: 20221026
  Serious: Yes (unspecified)
  Sender: FDA-Public Use
  Company Number: None

PATIENT
  Age: 73 Year
  Sex: Male

DRUGS (1)
  1. DOFETILIDE [Suspect]
     Active Substance: DOFETILIDE
     Indication: Atrial fibrillation
     Dosage: 500 MCG BID PO
     Route: 048
     Dates: start: 20220610, end: 20220613

REACTIONS (2)
  - Electrocardiogram QT prolonged [None]
  - Ventricular tachycardia [None]

NARRATIVE: CASE EVENT DATE: 20220613
